FAERS Safety Report 8877813 (Version 1)
Quarter: 2012Q4

REPORT INFORMATION
  Report Type: 
  Country: US (occurrence: US)
  Receive Date: 20121030
  Receipt Date: 20121030
  Transmission Date: 20130627
  Serious: No
  Sender: FDA-Public Use
  Company Number: US-VERTEX PHARMACEUTICAL INC.-2012-023702

PATIENT
  Sex: Male

DRUGS (9)
  1. VX-950 [Suspect]
     Indication: HEPATITIS C
     Dosage: 750 mg, tid
     Route: 048
     Dates: start: 201207
  2. RIBAPAK [Concomitant]
     Indication: HEPATITIS C
     Dosage: 1200 mg, qd
  3. PEGASYS [Concomitant]
     Dosage: 180 ?g, UNK
  4. VITAMIN E                          /00110501/ [Concomitant]
     Dosage: 100 ut, UNK
  5. VITAMIN C                          /00008001/ [Concomitant]
     Dosage: 500 mg, UNK
  6. VITAMIN B-12 [Concomitant]
     Dosage: 250 ?g, UNK
  7. FOLIC ACID [Concomitant]
  8. FISH OIL [Concomitant]
  9. ASA [Concomitant]
     Dosage: 81 mg, UNK

REACTIONS (1)
  - Dry mouth [Unknown]
